FAERS Safety Report 15041755 (Version 2)
Quarter: 2024Q2

REPORT INFORMATION
  Report Type: Spontaneous
  Country: JP (occurrence: JP)
  Receive Date: 20180621
  Receipt Date: 20240503
  Transmission Date: 20240715
  Serious: Yes (Other)
  Sender: FDA-Public Use
  Company Number: None

PATIENT
  Age: 50 Year
  Sex: Male
  Weight: 68.3 kg

DRUGS (12)
  1. MYCOPHENOLATE MOFETIL [Suspect]
     Active Substance: MYCOPHENOLATE MOFETIL
     Indication: Immunosuppressant drug therapy
     Dosage: UNK
     Route: 065
  2. TACROLIMUS [Interacting]
     Active Substance: TACROLIMUS
     Indication: Immunosuppressant drug therapy
     Dosage: UNK
     Route: 065
  3. TACROLIMUS [Interacting]
     Active Substance: TACROLIMUS
     Dosage: 3.4 MILLIGRAM, QD (EVERY 1 DAY)
     Route: 065
  4. TACROLIMUS [Interacting]
     Active Substance: TACROLIMUS
     Dosage: 1.4 MILLIGRAM, QD (TACROLIMUS DOSAGE WAS DECREASED BY 60% TO MAINTAIN THE TARGET BLOOD CONCENTRATION
     Route: 065
  5. TACROLIMUS [Interacting]
     Active Substance: TACROLIMUS
     Dosage: 1 MILLIGRAM, QD
     Route: 065
  6. TACROLIMUS [Interacting]
     Active Substance: TACROLIMUS
     Dosage: 3 MILLIGRAM, QD (FOLLOWING FLUCONAZOLE WITHDRAWAL)
     Route: 065
  7. TACROLIMUS [Interacting]
     Active Substance: TACROLIMUS
     Dosage: 1.8 MILLIGRAM, QD (EVERY 1 DAY)
     Route: 065
  8. FLUCONAZOLE [Interacting]
     Active Substance: FLUCONAZOLE
     Indication: Spondylitis
     Dosage: UNK
     Route: 042
  9. FLUCONAZOLE [Interacting]
     Active Substance: FLUCONAZOLE
     Indication: Infection
     Dosage: 400 MILLIGRAM, QD (EVERY 1 DAY)
     Route: 042
  10. FLUCONAZOLE [Interacting]
     Active Substance: FLUCONAZOLE
     Indication: Candida infection
     Dosage: 300 MILLIGRAM, QD (DOSE DECREASED AND THE WITHDRAWN AFTER INFECTION SUBSIDED)
     Route: 065
  11. FLUCONAZOLE [Interacting]
     Active Substance: FLUCONAZOLE
     Dosage: UNK
     Route: 048
  12. PREDNISOLONE [Suspect]
     Active Substance: PREDNISOLONE
     Indication: Immunosuppressant drug therapy
     Dosage: UNK
     Route: 065

REACTIONS (4)
  - Disease progression [Unknown]
  - Vasculitis [Unknown]
  - Renal impairment [Recovered/Resolved]
  - Drug interaction [Unknown]
